FAERS Safety Report 9637856 (Version 1)
Quarter: 2013Q4

REPORT INFORMATION
  Report Type: Spontaneous
  Country: NZ (occurrence: NZ)
  Receive Date: 20131022
  Receipt Date: 20131022
  Transmission Date: 20140711
  Serious: Yes (Other)
  Sender: FDA-Public Use
  Company Number: NZ-PFIZER INC-2013297941

PATIENT
  Sex: Male

DRUGS (2)
  1. LIPITOR [Suspect]
     Indication: BLOOD CHOLESTEROL
     Dosage: 40 MG, UNK
  2. LIPITOR [Suspect]
     Dosage: 80 MG, UNK

REACTIONS (2)
  - Myocardial infarction [Unknown]
  - High density lipoprotein decreased [Unknown]
